FAERS Safety Report 4939318-2 (Version None)
Quarter: 2006Q1

REPORT INFORMATION
  Report Type: 
  Country: None (occurrence: None)
  Receive Date: 20060310
  Receipt Date: 20060117
  Transmission Date: 20060701
  Serious: Yes (Hospitalization)
  Sender: FDA-Public Use
  Company Number: DE-SOLVAY-00306000263

PATIENT
  Age: 53 Year
  Sex: Male

DRUGS (1)
  1. TESTOGEL 25 MG [Suspect]
     Indication: HYPOGONADISM MALE
     Dosage: DAILY DOSE:  UNKNOWN
     Route: 062
     Dates: start: 20060114

REACTIONS (2)
  - HEMIPLEGIA [None]
  - SHOULDER PAIN [None]
